FAERS Safety Report 6165157-3 (Version None)
Quarter: 2009Q2

REPORT INFORMATION
  Report Type: 
  Country: None (occurrence: None)
  Receive Date: 20090421
  Receipt Date: 20090407
  Transmission Date: 20091009
  Serious: Yes (Life-Threatening, Hospitalization)
  Sender: FDA-Public Use
  Company Number: 1000005780

PATIENT
  Age: 71 Year
  Sex: Female

DRUGS (2)
  1. ESCITALOPRAM [Suspect]
  2. MEDIATOR [Suspect]
     Dosage: 3 DOSAGE FORMS (3 DOSAGE FORMS,1 IN 1 D),ORAL
     Route: 048
     Dates: start: 20031201, end: 20080301

REACTIONS (5)
  - AORTIC VALVE INCOMPETENCE [None]
  - CARDIAC FAILURE [None]
  - LEFT VENTRICULAR DYSFUNCTION [None]
  - MITRAL VALVE INCOMPETENCE [None]
  - PULMONARY ARTERIAL HYPERTENSION [None]
